FAERS Safety Report 13149193 (Version 1)
Quarter: 2017Q1

REPORT INFORMATION
  Report Type: Spontaneous
  Country: US (occurrence: US)
  Receive Date: 20170125
  Receipt Date: 20170125
  Transmission Date: 20170428
  Serious: Yes (Hospitalization, Other)
  Sender: FDA-Public Use
  Company Number: US-ALEXION PHARMACEUTICALS INC-A201700430

PATIENT
  Sex: Female

DRUGS (1)
  1. SOLIRIS [Suspect]
     Active Substance: ECULIZUMAB
     Indication: HAEMOLYTIC URAEMIC SYNDROME
     Route: 042

REACTIONS (7)
  - Blood glucose fluctuation [Unknown]
  - Cerebrovascular accident [Unknown]
  - Confusional state [Unknown]
  - Cardiac arrest [Unknown]
  - Diabetic coma [Unknown]
  - Seizure [Unknown]
  - Amnesia [Unknown]
